FAERS Safety Report 8123598-9 (Version None)
Quarter: 2012Q1

REPORT INFORMATION
  Report Type: 
  Country: None (occurrence: None)
  Receive Date: 20120208
  Receipt Date: 20120203
  Transmission Date: 20120608
  Serious: Yes (Hospitalization)
  Sender: FDA-Public Use
  Company Number: PHHO2011GB13634

PATIENT
  Sex: Male

DRUGS (7)
  1. AFINITOR [Suspect]
     Indication: RENAL CELL CARCINOMA
     Dosage: 5
     Route: 048
     Dates: start: 20110804
  2. METOCLOPRAMIDE [Concomitant]
     Indication: PROPHYLAXIS
     Dosage: 20 MG, PRN
     Dates: start: 20110805
  3. TKI258 [Suspect]
     Indication: RENAL CELL CARCINOMA
     Dosage: 200
     Route: 048
     Dates: start: 20110804
  4. RAMIPRIL [Concomitant]
     Indication: HYPERTENSION
     Dosage: 2.5 MG, QD
     Dates: start: 20090126
  5. TRAMADOL HCL [Concomitant]
     Indication: PAIN
     Dosage: 100 MG, PRN
     Dates: start: 20111005
  6. ACETAMINOPHEN [Concomitant]
     Indication: PAIN
     Dosage: 4 G, PRN
     Dates: start: 20110805
  7. AMLODIPINE [Concomitant]
     Indication: HYPERTENSION
     Dosage: 10 MG, QD
     Dates: start: 20080918

REACTIONS (2)
  - HYPERCALCAEMIA [None]
  - ANAEMIA [None]
